FAERS Safety Report 9091269 (Version 1)
Quarter: 2013Q1

REPORT INFORMATION
  Report Type: Report from Study
  Country: US (occurrence: US)
  Receive Date: 20130131
  Receipt Date: 20130131
  Transmission Date: 20140127
  Serious: No
  Sender: FDA-Public Use
  Company Number: US-ABBOTT-12P-163-1000529-00

PATIENT
  Age: 61 Year
  Sex: Female

DRUGS (7)
  1. HUMIRA [Suspect]
     Indication: RHEUMATOID ARTHRITIS
     Dates: start: 201209
  2. PLAQUENIL [Concomitant]
     Indication: ARTHRALGIA
     Dosage: 200MG DAILY
     Route: 048
  3. PREDNISONE [Concomitant]
     Indication: RHEUMATOID ARTHRITIS
     Dosage: 9 TABLETS DAILY
     Route: 048
  4. ACCUPRIL [Concomitant]
     Indication: HYPERTENSION
     Dosage: 40MG DAILY
     Route: 048
  5. FOLIC ACID [Concomitant]
     Indication: RHEUMATOID ARTHRITIS
     Dosage: 1MG DAILY
     Route: 048
  6. HYDROXYCHLOROQUINE [Concomitant]
     Indication: RHEUMATOID ARTHRITIS
     Dosage: 100MG DAILY
     Route: 048
  7. HYDROCHLOROT [Concomitant]
     Indication: HYPERTENSION
     Dosage: 12.5MG DAILY
     Route: 048

REACTIONS (7)
  - Injection site pain [Not Recovered/Not Resolved]
  - Gastroenteritis viral [Unknown]
  - Vomiting [Unknown]
  - Diarrhoea [Unknown]
  - Headache [Unknown]
  - Pyrexia [Unknown]
  - Drug dose omission [Not Recovered/Not Resolved]
